FAERS Safety Report 11066737 (Version 2)
Quarter: 2015Q2

REPORT INFORMATION
  Report Type: Spontaneous
  Country: US (occurrence: US)
  Receive Date: 20150425
  Receipt Date: 20150525
  Transmission Date: 20150821
  Serious: Yes (Other)
  Sender: FDA-Public Use
  Company Number: US-JNJFOC-20131116481

PATIENT
  Age: 29 Year
  Sex: Female
  Weight: 61.24 kg

DRUGS (11)
  1. CALCIUM [Concomitant]
     Active Substance: CALCIUM
     Route: 065
  2. PREDNISONE. [Concomitant]
     Active Substance: PREDNISONE
     Indication: COLITIS ULCERATIVE
     Dosage: DOSAGE DEPENDS ON HOW BAD MY ULCERATIVE COLITIS WAS AT ANY SPECIFIC TIME, 15 YEARS AGO
     Route: 048
  3. IMURAN [Suspect]
     Active Substance: AZATHIOPRINE
     Indication: COLITIS ULCERATIVE
     Route: 065
     Dates: start: 201311
  4. PROBIOTICS [Concomitant]
     Active Substance: PROBIOTICS NOS
     Route: 065
  5. VALTREX [Concomitant]
     Active Substance: VALACYCLOVIR HYDROCHLORIDE
     Indication: DECREASED IMMUNE RESPONSIVENESS
     Dosage: GOT SHINGLES 8 OR 10 YEARS AGO AND TAKE ASNEEDED FOR LOW IMMUNITY, AS NEEDED
     Route: 048
     Dates: start: 2005
  6. PREDNISONE. [Concomitant]
     Active Substance: PREDNISONE
     Indication: COLITIS ULCERATIVE
     Route: 048
     Dates: start: 201311
  7. MULTIVITAMINS [Concomitant]
     Active Substance: VITAMINS
     Route: 065
  8. IMURAN [Suspect]
     Active Substance: AZATHIOPRINE
     Indication: COLITIS ULCERATIVE
     Dosage: 15 YEARS AGO
     Route: 065
     Dates: end: 201306
  9. FISH OIL [Concomitant]
     Active Substance: FISH OIL
     Route: 065
  10. REMICADE [Suspect]
     Active Substance: INFLIXIMAB
     Indication: COLITIS ULCERATIVE
     Route: 042
     Dates: start: 201111
  11. IMURAN [Suspect]
     Active Substance: AZATHIOPRINE
     Indication: COLITIS ULCERATIVE
     Route: 065
     Dates: start: 201306, end: 201311

REACTIONS (3)
  - Autoimmune hepatitis [Not Recovered/Not Resolved]
  - Unevaluable event [Unknown]
  - Colitis ulcerative [Unknown]

NARRATIVE: CASE EVENT DATE: 2013
